FAERS Safety Report 13937697 (Version 1)
Quarter: 2017Q3

REPORT INFORMATION
  Report Type: Spontaneous
  Country: US (occurrence: US)
  Receive Date: 20170905
  Receipt Date: 20170905
  Transmission Date: 20171127
  Serious: No
  Sender: FDA-Public Use
  Company Number: US-BAYER-2017-168811

PATIENT
  Sex: Female
  Weight: 70.74 kg

DRUGS (1)
  1. MIRALAX [Suspect]
     Active Substance: POLYETHYLENE GLYCOL 3350
     Indication: GASTROINTESTINAL DISORDER
     Dosage: UNK UNK, QOD
     Route: 048

REACTIONS (4)
  - Product solubility abnormal [None]
  - Product use issue [Unknown]
  - Product physical issue [None]
  - Inappropriate prescribing [Unknown]

NARRATIVE: CASE EVENT DATE: 2015
